FAERS Safety Report 5469653-3 (Version None)
Quarter: 2007Q3

REPORT INFORMATION
  Report Type: 
  Country: None (occurrence: None)
  Receive Date: 20070926
  Receipt Date: 20070926
  Transmission Date: 20080115
  Serious: Yes (Hospitalization)
  Sender: FDA-Public Use
  Company Number: None

PATIENT
  Age: 57 Year
  Sex: Male
  Weight: 99.8 kg

DRUGS (7)
  1. ZOMETA [Suspect]
     Dosage: 4MG Q 90 DAYS IV
     Route: 042
     Dates: start: 20070503
  2. ZOMETA [Suspect]
     Dosage: 4MG Q 90 DAYS IV
     Route: 042
     Dates: start: 20070725
  3. LOTREL [Concomitant]
  4. MINOCYCLINE HCL [Concomitant]
  5. LEXAPRO [Concomitant]
  6. ZOCOR [Concomitant]
  7. DEXAMETHASONE 0.5MG TAB [Concomitant]

REACTIONS (1)
  - NEOPLASM PROGRESSION [None]
